FAERS Safety Report 9135099 (Version 1)
Quarter: 2013Q1

REPORT INFORMATION
  Report Type: Spontaneous
  Country: GB (occurrence: GB)
  Receive Date: 20130304
  Receipt Date: 20130304
  Transmission Date: 20140127
  Serious: Yes (Hospitalization, Disabling)
  Sender: FDA-Public Use
  Company Number: GB-SANOFI-AVENTIS-2013SA013601

PATIENT
  Age: 66 Year
  Sex: Female

DRUGS (11)
  1. ARAVA [Suspect]
     Indication: RHEUMATOID ARTHRITIS
     Route: 065
     Dates: start: 201201, end: 201302
  2. AMLODIPINE [Concomitant]
     Indication: RHEUMATOID ARTHRITIS
  3. PREDNISOLONE [Concomitant]
     Indication: RHEUMATOID ARTHRITIS
  4. LANSOPRAZOLE [Concomitant]
     Indication: RHEUMATOID ARTHRITIS
  5. ADALAT [Concomitant]
     Indication: RHEUMATOID ARTHRITIS
  6. SIMVASTATIN [Concomitant]
     Indication: RHEUMATOID ARTHRITIS
     Dosage: DOSE: 1 TAKEN IN NIGHT (UNITS NOT REPORTED)
  7. LIPITOR [Concomitant]
     Indication: RHEUMATOID ARTHRITIS
  8. MORPHINE SULFATE [Concomitant]
     Indication: PAIN
     Dosage: DOSE: 30 MG + 10 MG
  9. GABAPENTIN [Concomitant]
     Indication: PAIN
     Dosage: DOSE: 6 X 600 MG
  10. NEFOPAM [Concomitant]
     Indication: PAIN
     Dosage: DOSE: 1 (UNITS NOT REPORTED)
  11. AMITRIPTYLINE [Concomitant]
     Indication: PAIN
     Dosage: 2 X 10 MG IN NIGHT

REACTIONS (8)
  - Immobile [Not Recovered/Not Resolved]
  - Fall [Not Recovered/Not Resolved]
  - Neuropathy peripheral [Not Recovered/Not Resolved]
  - Walking aid user [Not Recovered/Not Resolved]
  - Peroneal nerve palsy [Not Recovered/Not Resolved]
  - Local swelling [Not Recovered/Not Resolved]
  - Pain in extremity [Not Recovered/Not Resolved]
  - Fatigue [Not Recovered/Not Resolved]
